FAERS Safety Report 13424399 (Version 1)
Quarter: 2017Q2

REPORT INFORMATION
  Report Type: Spontaneous
  Country: US (occurrence: US)
  Receive Date: 20170410
  Receipt Date: 20170410
  Transmission Date: 20170830
  Serious: No
  Sender: FDA-Public Use
  Company Number: US-BAYER-2017-063164

PATIENT

DRUGS (1)
  1. MIRALAX [Suspect]
     Active Substance: POLYETHYLENE GLYCOL 3350
     Indication: CONSTIPATION
     Dosage: 1 DF, QD
     Route: 048

REACTIONS (12)
  - Aggression [Recovered/Resolved]
  - Abnormal behaviour [None]
  - Abdominal pain [Unknown]
  - Liver disorder [Unknown]
  - Thinking abnormal [Unknown]
  - Screaming [Recovered/Resolved]
  - Skin discolouration [Unknown]
  - Renal disorder [Unknown]
  - Fear [Unknown]
  - Anxiety [Recovered/Resolved]
  - Personality change [Unknown]
  - Drug administered to patient of inappropriate age [Unknown]
